FAERS Safety Report 16648445 (Version 1)
Quarter: 2019Q3

REPORT INFORMATION
  Report Type: Report from Study
  Country: CN (occurrence: CN)
  Receive Date: 20190730
  Receipt Date: 20190730
  Transmission Date: 20191004
  Serious: Yes (Other)
  Sender: FDA-Public Use
  Company Number: CN-BAYER-2019-137640

PATIENT
  Sex: Female

DRUGS (2)
  1. DROSPIRENONE 3MG + ETHINYLESTRADIOL 0.03MG (21) [Suspect]
     Active Substance: DROSPIRENONE\ETHINYL ESTRADIOL
     Indication: ENDOMETRIOSIS
     Dosage: 1 DF, QD
     Route: 048
  2. DIENOGEST [Suspect]
     Active Substance: DIENOGEST
     Dosage: 1 MG, BID
     Route: 048

REACTIONS (1)
  - Pleural effusion [None]
